FAERS Safety Report 17463622 (Version 1)
Quarter: 2020Q1

REPORT INFORMATION
  Report Type: Spontaneous
  Country: IT (occurrence: IT)
  Receive Date: 20200226
  Receipt Date: 20200226
  Transmission Date: 20200409
  Serious: Yes (Death, Hospitalization)
  Sender: FDA-Public Use
  Company Number: IT-TEVA-2020-IT-1190080

PATIENT
  Age: 40 Year
  Sex: Male

DRUGS (22)
  1. DELORAZEPAM [Suspect]
     Active Substance: DELORAZEPAM
     Indication: BIPOLAR I DISORDER
     Dosage: ON DAY 1 OF ADMISSION (AT 8:00 PM)
     Route: 042
  2. PROMAZINE [Interacting]
     Active Substance: PROMAZINE
     Dosage: ON DAY 5 OF ADMISSION (AT 1:00 PM AND NIGHT)
     Route: 048
  3. CHLORPROMAZINE. [Suspect]
     Active Substance: CHLORPROMAZINE
     Indication: BIPOLAR I DISORDER
     Dosage: ON DAY 1 OF ADMISSION (AT 8:000 PM)
     Route: 042
  4. HALOPERIDOL. [Interacting]
     Active Substance: HALOPERIDOL
     Indication: BIPOLAR I DISORDER
     Dosage: ON DAY 1 ON ADMISSION (AT 1:00 PM)
     Route: 042
  5. HALOPERIDOL. [Interacting]
     Active Substance: HALOPERIDOL
     Dosage: ON DAY 5 ON ADMISSION (AT 8:00 AM AND 8:00 PM)
     Route: 048
  6. DELORAZEPAM [Suspect]
     Active Substance: DELORAZEPAM
     Dosage: ON DAY 2 OF ADMISSION (AT NIGHT)
     Route: 030
  7. HALOPERIDOL. [Interacting]
     Active Substance: HALOPERIDOL
     Dosage: ON DAY 4 ON ADMISSION (AT 8:00 PM)
     Route: 048
  8. FLUVOXAMINE [Interacting]
     Active Substance: FLUVOXAMINE
     Indication: BIPOLAR I DISORDER
     Route: 048
  9. SODIUM-VALPROATE [Interacting]
     Active Substance: VALPROATE SODIUM
     Dosage: ON DAY 3, 4 AND 5 OF ADMISSION (AT 8:00 AM, 1:00 PM AND 8:00 PM)
     Route: 048
  10. DELORAZEPAM [Suspect]
     Active Substance: DELORAZEPAM
     Dosage: ON DAY 3,4 AND 5 OF ADMISSION (AT NIGHT)
     Route: 048
  11. MIDAZOLAM HYDROCHLORIDE. [Suspect]
     Active Substance: MIDAZOLAM HYDROCHLORIDE
     Indication: BIPOLAR I DISORDER
     Dosage: ON DAY 1 OF ADMISSION (1:00 PM 15MG AND AT NIGHT 5MG)
     Route: 042
  12. CHLORPHENIRAMINE. [Suspect]
     Active Substance: CHLORPHENIRAMINE
     Indication: BIPOLAR I DISORDER
     Dosage: ON DAY 1 OF ADMISSION (AT 8:00 PM)
     Route: 042
  13. SODIUM-VALPROATE [Suspect]
     Active Substance: VALPROATE SODIUM
     Indication: BIPOLAR I DISORDER
     Dosage: ON DAY 1 OF ADMISSION (AT NIGHT); ON DAY 2 OF ADMISSION (AT 8:00 PM)
     Route: 048
  14. CLOZAPINE. [Interacting]
     Active Substance: CLOZAPINE
     Indication: BIPOLAR I DISORDER
     Dosage: INITIAL DOSE
     Route: 048
  15. CLOZAPINE. [Interacting]
     Active Substance: CLOZAPINE
     Dosage: ON DAY 3 OF ADMISSION (8:00 AM, 1:00 PM AND 8:00 PM)
     Route: 048
  16. CHLORPROMAZINE. [Suspect]
     Active Substance: CHLORPROMAZINE
     Dosage: ON DAY 2 OF ADMISSION (AT NIGHT)
     Route: 030
  17. CLOZAPINE. [Interacting]
     Active Substance: CLOZAPINE
     Dosage: ON DAY 2 OF ADMISSION (AT 8:00 PM)
     Route: 048
  18. CLOZAPINE. [Interacting]
     Active Substance: CLOZAPINE
     Dosage: ON DAY 4 OF ADMISSION (8:00 AM, 1:00 PM, 8:00 PM AND AT NIGHT)
     Route: 048
  19. CLOZAPINE. [Interacting]
     Active Substance: CLOZAPINE
     Dosage: ON DAY 5 OF ADMISSION (8:00 AM AND 1:00 PM)
     Route: 048
  20. PROMAZINE [Interacting]
     Active Substance: PROMAZINE
     Indication: BIPOLAR I DISORDER
     Dosage: ON DAY 3 AND 4 OF ADMISSION (AT NIGHT)
     Route: 048
  21. CLOTIAPINE [Suspect]
     Active Substance: CLOTHIAPINE
     Indication: BIPOLAR I DISORDER
     Dosage: ON DAY 1 OF ADMISSION (AT NIGHT); ON DAY 2 OF ADMISSION (AT 8:00 PM)
     Route: 030
  22. CLOTIAPINE [Suspect]
     Active Substance: CLOTHIAPINE
     Dosage: ON DAY 3 OF ADMISSION (AT 8:00 AM, 1:00 PM AND 8:00 PM)
     Route: 030

REACTIONS (3)
  - Drug interaction [Fatal]
  - Toxicity to various agents [Fatal]
  - Cardiac arrest [Fatal]
